FAERS Safety Report 17354444 (Version 1)
Quarter: 2020Q1

REPORT INFORMATION
  Report Type: Spontaneous
  Country: US (occurrence: US)
  Receive Date: 20200109
  Receipt Date: 20200109
  Transmission Date: 20200409
  Serious: No
  Sender: FDA-Public Use
  Company Number: None

PATIENT
  Age: 57 Year
  Sex: Female

DRUGS (15)
  1. LISINOPRIL TAB 10 MG [Concomitant]
  2. MULTI-VITAMIN [Concomitant]
     Active Substance: .ALPHA.-TOCOPHEROL ACETATE, DL-\ASCORBIC ACID\CYANOCOBALAMIN\FLUORIDE ION\FOLIC ACID\NIACIN\PYRIDOXINE\RIBOFLAVIN\THIAMINE\VITAMIN A\VITAMIN D
  3. MAGNESIUM TAB 27 MG [Concomitant]
  4. OSPHENA TAB 60 MG [Concomitant]
  5. KRILL OIL CAP 300 MG [Concomitant]
  6. MELATONIN TAB 3 MG [Concomitant]
  7. TUMERSAID TAB [Concomitant]
  8. VITAMIN D 50000 UNT [Concomitant]
  9. ARAVA TAB 20 MG [Concomitant]
  10. ASPIRIN CHW 81 MG [Concomitant]
  11. MOBIC TAB 15 MG [Concomitant]
  12. LIPITOR TAB 10 MG [Concomitant]
  13. HUMIRA [Suspect]
     Active Substance: ADALIMUMAB
     Indication: RHEUMATOID ARTHRITIS
     Route: 058
     Dates: start: 20131111
  14. MELOXICAM TAB 15 MG [Concomitant]
  15. OMEPRAZOLE CAP 10 MG [Concomitant]

REACTIONS (1)
  - Limb operation [None]
